FAERS Safety Report 4527239-9 (Version None)
Quarter: 2004Q4

REPORT INFORMATION
  Report Type: 
  Country: None (occurrence: None)
  Receive Date: 20041214
  Receipt Date: 20041214
  Transmission Date: 20050328
  Serious: No
  Sender: FDA-Public Use
  Company Number: None

PATIENT
  Age: 53 Year
  Sex: Male
  Weight: 99.7913 kg

DRUGS (11)
  1. HALDOL [Suspect]
     Indication: NAUSEA
     Dosage: X2/DAY EVERY 12 HRS
     Dates: start: 19920101, end: 20041001
  2. SIMVASTATIN [Concomitant]
  3. TRAZODONE HCL [Concomitant]
  4. BABY ASPRIN [Concomitant]
  5. NEURONTIN [Concomitant]
  6. DEPAKOTE [Concomitant]
  7. CARAFATE [Concomitant]
  8. ROBAXIN [Concomitant]
  9. CODEINE [Concomitant]
  10. OXYCODONE [Concomitant]
  11. FENTANYL [Concomitant]

REACTIONS (9)
  - CONVULSION [None]
  - DIZZINESS [None]
  - DYSPHAGIA [None]
  - EATING DISORDER [None]
  - FACIAL PALSY [None]
  - MUSCLE TWITCHING [None]
  - PARKINSON'S DISEASE [None]
  - TONGUE DISORDER [None]
  - TREMOR [None]
